FAERS Safety Report 9659337 (Version 1)
Quarter: 2013Q4

REPORT INFORMATION
  Report Type: Spontaneous
  Country: US (occurrence: US)
  Receive Date: 20131031
  Receipt Date: 20131031
  Transmission Date: 20140711
  Serious: Yes (Hospitalization)
  Sender: FDA-Public Use
  Company Number: US-JNJFOC-20131016793

PATIENT
  Sex: Female
  Weight: 70.18 kg

DRUGS (11)
  1. DOXORUBICIN HYDROCHLORIDE [Suspect]
     Indication: NON-HODGKIN^S LYMPHOMA
     Route: 042
     Dates: start: 20130930
  2. BORTEZOMIB [Suspect]
     Indication: NON-HODGKIN^S LYMPHOMA
     Dosage: ON DAYS 1, 8, 15
     Route: 058
     Dates: start: 20130823
  3. BORTEZOMIB [Suspect]
     Indication: NON-HODGKIN^S LYMPHOMA
     Route: 058
     Dates: start: 20130920, end: 20130920
  4. MLN8237 [Suspect]
     Indication: NON-HODGKIN^S LYMPHOMA
     Dosage: ON DAYS 1-7
     Route: 048
     Dates: start: 20130823
  5. MLN8237 [Suspect]
     Indication: NON-HODGKIN^S LYMPHOMA
     Dosage: ON DAYS 1-7
     Route: 048
     Dates: start: 20130920, end: 20130926
  6. RITUXIMAB [Suspect]
     Indication: NON-HODGKIN^S LYMPHOMA
     Route: 042
     Dates: start: 20130930
  7. RITUXIMAB [Suspect]
     Indication: NON-HODGKIN^S LYMPHOMA
     Dosage: ON DAY 1 FOR UP TO 8 CYCLES
     Route: 042
     Dates: start: 20130823
  8. RITUXIMAB [Suspect]
     Indication: NON-HODGKIN^S LYMPHOMA
     Dosage: DAY 1, EVERY THREE CYCLES
     Route: 042
     Dates: start: 20130920, end: 20130920
  9. CYCLOPHOSPHAMIDE [Suspect]
     Indication: NON-HODGKIN^S LYMPHOMA
     Route: 065
     Dates: start: 20130930
  10. VINCRISTINE [Suspect]
     Indication: NON-HODGKIN^S LYMPHOMA
     Route: 065
     Dates: start: 20130930
  11. PREDNISONE [Suspect]
     Indication: NON-HODGKIN^S LYMPHOMA
     Route: 065
     Dates: start: 20130930

REACTIONS (6)
  - Hyperkalaemia [Recovered/Resolved with Sequelae]
  - Chest pain [Unknown]
  - Dyspnoea [Unknown]
  - Gastric dilatation [Unknown]
  - Ascites [Unknown]
  - Tumour lysis syndrome [Unknown]
